FAERS Safety Report 10089784 (Version 4)
Quarter: 2014Q2

REPORT INFORMATION
  Report Type: Spontaneous
  Country: US (occurrence: US)
  Receive Date: 20140421
  Receipt Date: 20140617
  Transmission Date: 20141212
  Serious: Yes (Other)
  Sender: FDA-Public Use
  Company Number: US-PFIZER INC-2014109853

PATIENT
  Sex: Female

DRUGS (6)
  1. EFFEXOR [Suspect]
     Dosage: UNK
  2. EFFEXOR XR [Suspect]
     Indication: MENTAL DISORDER
     Dosage: 150 MG, UNK
     Dates: start: 2004
  3. VENLAFAXINE HCL [Suspect]
     Indication: MENTAL DISORDER
     Dosage: UNK
  4. PRISTIQ [Suspect]
     Indication: MENTAL DISORDER
     Dosage: UNK
  5. CYMBALTA [Suspect]
     Indication: MENTAL DISORDER
     Dosage: 30 MG, UNK
  6. CYMBALTA [Suspect]
     Dosage: 60 MG, UNK

REACTIONS (4)
  - Thyroid cancer [Unknown]
  - Nephrolithiasis [Unknown]
  - Mental disorder [Unknown]
  - Drug ineffective [Unknown]
